FAERS Safety Report 25810411 (Version 2)
Quarter: 2025Q4

REPORT INFORMATION
  Report Type: Spontaneous
  Country: US (occurrence: US)
  Receive Date: 20250917
  Receipt Date: 20251008
  Transmission Date: 20260118
  Serious: No
  Sender: TOLMAR
  Company Number: US-Tolmar-TLM-2025-06007

PATIENT

DRUGS (2)
  1. ELIGARD [Suspect]
     Active Substance: LEUPROLIDE ACETATE
     Indication: Product used for unknown indication
     Dosage: SERIAL: 4811424113899?GTIN: 00362935461500
  2. DEVICE [Suspect]
     Active Substance: DEVICE
     Indication: Product used for unknown indication
     Dosage: SERIAL: 4811424113899?GTIN: 00362935461500

REACTIONS (2)
  - Intercepted product preparation error [Unknown]
  - Product reconstitution quality issue [Unknown]
